FAERS Safety Report 10976971 (Version 3)
Quarter: 2015Q2

REPORT INFORMATION
  Report Type: Spontaneous
  Country: JP (occurrence: JP)
  Receive Date: 20150402
  Receipt Date: 20150623
  Transmission Date: 20150821
  Serious: Yes (Death)
  Sender: FDA-Public Use
  Company Number: JP-ROCHE-1559014

PATIENT
  Age: 74 Year
  Sex: Female
  Weight: 44 kg

DRUGS (2)
  1. ACTEMRA [Suspect]
     Active Substance: TOCILIZUMAB
     Indication: RHEUMATOID ARTHRITIS
     Route: 041
     Dates: start: 20080813, end: 201309
  2. METOLATE [Suspect]
     Active Substance: METHOTREXATE
     Indication: MALIGNANT MELANOMA
     Route: 048
     Dates: start: 20060201, end: 20140919

REACTIONS (3)
  - Metastases to lymph nodes [Fatal]
  - Metastases to lung [Fatal]
  - Malignant melanoma [Fatal]

NARRATIVE: CASE EVENT DATE: 201301
